FAERS Safety Report 9596515 (Version 2)
Quarter: 2013Q4

REPORT INFORMATION
  Report Type: Report from Study
  Country: DE (occurrence: DE)
  Receive Date: 20131004
  Receipt Date: 20131004
  Transmission Date: 20140711
  Serious: Yes (Hospitalization)
  Sender: FDA-Public Use
  Company Number: DE-ABBVIE-13P-062-1094417-00

PATIENT
  Age: 43 Year
  Sex: Male
  Weight: 108 kg

DRUGS (6)
  1. HUMIRA [Suspect]
     Indication: PSORIASIS
     Route: 058
     Dates: start: 201006, end: 201303
  2. HUMIRA [Suspect]
     Route: 058
  3. CONTRAST MEDIUM [Suspect]
     Indication: PRODUCT USED FOR UNKNOWN INDICATION
  4. METHOTREXATE [Concomitant]
     Indication: PSORIASIS
     Dates: end: 201303
  5. METHOTREXATE [Concomitant]
  6. METHOTREXATE [Concomitant]
     Dates: start: 201107

REACTIONS (6)
  - Cerebrovascular accident [Recovered/Resolved]
  - Pneumonia [Recovered/Resolved]
  - Hypersensitivity [Not Recovered/Not Resolved]
  - Psoriasis [Recovered/Resolved]
  - Cerebral ischaemia [Unknown]
  - Hemiparesis [Unknown]
